FAERS Safety Report 10374133 (Version 2)
Quarter: 2014Q3

REPORT INFORMATION
  Report Type: Spontaneous
  Country: DE (occurrence: DE)
  Receive Date: 20140811
  Receipt Date: 20140828
  Transmission Date: 20150326
  Serious: Yes (Other)
  Sender: FDA-Public Use
  Company Number: GXKR2014DE002842

PATIENT
  Sex: Male

DRUGS (3)
  1. PANTOPRAZOL TAD [Concomitant]
     Route: 048
  2. AMOXIHEXAL [Suspect]
     Active Substance: AMOXICILLIN
     Route: 048
  3. CLARILIND [Concomitant]
     Route: 048

REACTIONS (1)
  - Haematochezia [Unknown]

NARRATIVE: CASE EVENT DATE: 20140802
